FAERS Safety Report 5118376-9 (Version None)
Quarter: 2006Q4

REPORT INFORMATION
  Report Type: 
  Country: None (occurrence: None)
  Receive Date: 20061002
  Receipt Date: 20060626
  Transmission Date: 20070319
  Serious: Yes (Death, Hospitalization)
  Sender: FDA-Public Use
  Company Number: FR-BAYER-200610612BFR

PATIENT
  Age: 60 Year
  Sex: Male

DRUGS (9)
  1. SORAFENIB [Suspect]
     Indication: RENAL CELL CARCINOMA STAGE UNSPECIFIED
     Dosage: UNIT DOSE: 200 MG
     Route: 048
     Dates: start: 20060105, end: 20060206
  2. SORAFENIB [Suspect]
     Dosage: UNIT DOSE: 200 MG
     Route: 048
     Dates: start: 20060206, end: 20060313
  3. GLUCOPHAGE [Concomitant]
     Indication: DIABETES MELLITUS
     Route: 065
     Dates: start: 19950101
  4. BISOPROLOL FUMARATE [Concomitant]
     Indication: HYPERTENSION
     Route: 065
     Dates: start: 19950101
  5. DIANTALVIC [Concomitant]
     Indication: CHEST PAIN
     Route: 065
     Dates: start: 20051222
  6. DURAGESIC-100 [Concomitant]
     Indication: CHEST PAIN
     Route: 065
     Dates: start: 20060112
  7. PRIMPERAN TAB [Concomitant]
     Indication: NAUSEA
     Route: 065
     Dates: start: 20060120
  8. DIAMICRON [Concomitant]
     Indication: DIABETES MELLITUS
     Route: 065
     Dates: start: 19950101
  9. MORPHINE SULFATE [Concomitant]
     Indication: CHEST PAIN
     Route: 065
     Dates: start: 20060206

REACTIONS (3)
  - GENERAL PHYSICAL HEALTH DETERIORATION [None]
  - MALIGNANT NEOPLASM PROGRESSION [None]
  - METASTATIC RENAL CELL CARCINOMA [None]
